FAERS Safety Report 8211836-3 (Version None)
Quarter: 2012Q1

REPORT INFORMATION
  Report Type: 
  Country: None (occurrence: None)
  Receive Date: 20120315
  Receipt Date: 20120308
  Transmission Date: 20120608
  Serious: Yes (Other)
  Sender: FDA-Public Use
  Company Number: CA-JNJFOC-20120205671

PATIENT
  Sex: Female

DRUGS (2)
  1. TYLENOL W/ CODEINE NO. 3 [Suspect]
     Indication: PRODUCT USED FOR UNKNOWN INDICATION
     Route: 065
     Dates: start: 20110101
  2. TYLENOL W/ CODEINE NO. 4 [Suspect]
     Indication: PRODUCT USED FOR UNKNOWN INDICATION
     Route: 065
     Dates: start: 20110101

REACTIONS (1)
  - HEPATIC CYST [None]
